FAERS Safety Report 4330773-8 (Version None)
Quarter: 2004Q2

REPORT INFORMATION
  Report Type: 
  Country: None (occurrence: None)
  Receive Date: 20040401
  Receipt Date: 20040401
  Transmission Date: 20050107
  Serious: Yes (Hospitalization)
  Sender: FDA-Public Use
  Company Number: None

PATIENT
  Age: 54 Year
  Sex: Female
  Weight: 93.441 kg

DRUGS (3)
  1. XELODA [Suspect]
     Indication: BREAST CANCER
     Dosage: 1300 MGM PO BID
     Route: 048
  2. TAXOTERE [Suspect]
  3. KEFLEX [Concomitant]

REACTIONS (2)
  - BLOOD SODIUM DECREASED [None]
  - GASTROENTERITIS VIRAL [None]
